FAERS Safety Report 4558589-8 (Version None)
Quarter: 2005Q1

REPORT INFORMATION
  Report Type: 
  Country: None (occurrence: None)
  Receive Date: 20050121
  Receipt Date: 20041130
  Transmission Date: 20050727
  Serious: Yes (Life-Threatening, Hospitalization)
  Sender: FDA-Public Use
  Company Number: SE-ROCHE-387755

PATIENT
  Age: 55 Year
  Sex: Male

DRUGS (34)
  1. MYCOPHENOLATE MOFETIL [Suspect]
     Route: 065
  2. TACROLIMUS [Suspect]
     Dosage: DOSES ADJUSTED TO REACH PREDEFINED TARGET LEVELS.
     Route: 048
     Dates: start: 20041126
  3. METHYLPREDNISOLONE [Suspect]
     Route: 065
     Dates: start: 20041126, end: 20041126
  4. METHYLPREDNISOLONE [Suspect]
     Dosage: TREATMENT OF REJECTION
     Route: 065
     Dates: start: 20041202, end: 20041202
  5. PREDNISOLONE [Suspect]
     Dosage: TAPER ACCORDING TO LOCAL PROTOCOL.
     Route: 065
     Dates: start: 20041127, end: 20041202
  6. PREDNISOLONE [Suspect]
     Dosage: TREATMENT FOR REJECTION
     Route: 065
     Dates: start: 20041203, end: 20041206
  7. PREDNISOLONE [Suspect]
     Dosage: TAPER ACCORDING TO LOCAL PROTOCOL
     Route: 065
     Dates: start: 20041207
  8. AMPICILLIN [Concomitant]
     Indication: INFECTION PROPHYLAXIS
     Dates: start: 20041126, end: 20041202
  9. CEFOTAXIM [Concomitant]
     Indication: INFECTION PROPHYLAXIS
     Dates: start: 20041126, end: 20041202
  10. CETOBEMIDONE [Concomitant]
     Dates: start: 20041126, end: 20041126
  11. NORADRENALINE [Concomitant]
     Dates: start: 20041126, end: 20041128
  12. PROPOFOL [Concomitant]
     Indication: SEDATION
     Dates: start: 20041126, end: 20041204
  13. FUROSEMIDE [Concomitant]
     Dates: start: 20041126, end: 20041217
  14. DOPAMIN [Concomitant]
     Dates: start: 20041126, end: 20041129
  15. INSULIN [Concomitant]
     Dates: start: 20041126
  16. ALBUMIN (HUMAN) [Concomitant]
     Dates: start: 20041126
  17. MORFIN [Concomitant]
     Dates: start: 20041126, end: 20041128
  18. AMFOTERICIN B [Concomitant]
     Dates: start: 20041127, end: 20041207
  19. NYSTATIN [Concomitant]
     Dates: start: 20041126
  20. OMEPRAZOLE [Concomitant]
     Dates: start: 20041128
  21. DALTEPARIN [Concomitant]
     Dates: start: 20041129, end: 20041201
  22. CETOBEMIDONE [Concomitant]
     Dates: start: 20041129
  23. GENERIC DRUG NOS [Concomitant]
     Dosage: DRUG REPORTED AS ^FENYLEFRINCHLORID^
     Dates: start: 20041202, end: 20041202
  24. METOCLOPRAMID [Concomitant]
     Dates: start: 20041202, end: 20041207
  25. ALBUTEROL [Concomitant]
     Dates: start: 20041201, end: 20041204
  26. ACETYLCYSTEINE [Concomitant]
     Dates: start: 20041201, end: 20041204
  27. HEPARIN [Concomitant]
     Dates: start: 20041201, end: 20041206
  28. DESMOPRESSIN [Concomitant]
     Dates: start: 20041202, end: 20041208
  29. AMLODIPINE [Concomitant]
     Dates: start: 20041204, end: 20041206
  30. POLYETHYLENE GLYCOL [Concomitant]
     Dates: start: 20041206, end: 20041206
  31. CEFTAZIDIM [Concomitant]
     Dates: start: 20041212, end: 20041216
  32. ACETYLSALICYLIC ACID SRT [Concomitant]
     Dates: start: 20041207, end: 20041217
  33. LIDOCAIN [Concomitant]
     Dates: start: 20041208, end: 20041208
  34. GANCICLOVIR [Concomitant]
     Dates: start: 20041216

REACTIONS (17)
  - ASPIRATION [None]
  - CARDIOVASCULAR DISORDER [None]
  - CHOLANGITIS [None]
  - CONFUSIONAL STATE [None]
  - CYTOMEGALOVIRUS INFECTION [None]
  - DEPRESSED LEVEL OF CONSCIOUSNESS [None]
  - DIABETES MELLITUS [None]
  - ENTEROCOCCAL INFECTION [None]
  - HAEMATOMA [None]
  - HAEMODIALYSIS [None]
  - HAEMOGLOBIN DECREASED [None]
  - HYPOTENSION [None]
  - LUNG INFILTRATION [None]
  - POST PROCEDURAL HAEMORRHAGE [None]
  - RENAL IMPAIRMENT [None]
  - RESPIRATORY FAILURE [None]
  - THROMBOCYTOPENIA [None]
